FAERS Safety Report 9875293 (Version 2)
Quarter: 2014Q1

REPORT INFORMATION
  Report Type: Spontaneous
  Country: US (occurrence: US)
  Receive Date: 20140206
  Receipt Date: 20140206
  Transmission Date: 20141002
  Serious: No
  Sender: FDA-Public Use
  Company Number: US-ACORDA-ACO_37030_2013

PATIENT
  Age: 55 Year
  Sex: Female
  Weight: 56.69 kg

DRUGS (5)
  1. AMPYRA [Suspect]
     Indication: GAIT DISTURBANCE
     Dosage: 10 MG, Q 12 HRS
     Route: 048
     Dates: start: 201305
  2. AMPYRA [Suspect]
     Indication: MULTIPLE SCLEROSIS
  3. TECIFIDERA [Concomitant]
     Indication: MULTIPLE SCLEROSIS
     Dosage: UNK
     Route: 065
     Dates: start: 201305
  4. WELLBUTRIN [Concomitant]
     Indication: PRODUCT USED FOR UNKNOWN INDICATION
     Dosage: 150 MG, UNK
     Route: 065
     Dates: start: 201210
  5. AMANTADINE [Concomitant]
     Indication: ASTHENIA
     Dosage: 100 MG, UNK
     Route: 065
     Dates: start: 201305

REACTIONS (5)
  - Vocal cord disorder [Unknown]
  - Throat irritation [Recovering/Resolving]
  - Dysphonia [Recovering/Resolving]
  - Oropharyngeal pain [Recovered/Resolved]
  - Multiple sclerosis relapse [Recovering/Resolving]
